FAERS Safety Report 25640903 (Version 1)
Quarter: 2025Q3

REPORT INFORMATION
  Report Type: Spontaneous
  Country: US (occurrence: US)
  Receive Date: 20250804
  Receipt Date: 20250804
  Transmission Date: 20251020
  Serious: Yes (Other)
  Sender: MYLAN
  Company Number: US-MYLANLABS-2025M1065180

PATIENT
  Age: 68 Year
  Sex: Male

DRUGS (8)
  1. PREDNISONE [Suspect]
     Active Substance: PREDNISONE
     Indication: Pemphigoid
  2. PREDNISONE [Suspect]
     Active Substance: PREDNISONE
     Route: 048
  3. PREDNISONE [Suspect]
     Active Substance: PREDNISONE
     Route: 048
  4. PREDNISONE [Suspect]
     Active Substance: PREDNISONE
  5. FLUOCINONIDE [Suspect]
     Active Substance: FLUOCINONIDE
     Indication: Pemphigoid
  6. FLUOCINONIDE [Suspect]
     Active Substance: FLUOCINONIDE
     Route: 061
  7. FLUOCINONIDE [Suspect]
     Active Substance: FLUOCINONIDE
     Route: 061
  8. FLUOCINONIDE [Suspect]
     Active Substance: FLUOCINONIDE

REACTIONS (1)
  - Drug ineffective [Unknown]
